FAERS Safety Report 7780443-9 (Version None)
Quarter: 2011Q3

REPORT INFORMATION
  Report Type: 
  Country: None (occurrence: None)
  Receive Date: 20110923
  Receipt Date: 20110912
  Transmission Date: 20111222
  Serious: Yes (Life-Threatening, Hospitalization)
  Sender: FDA-Public Use
  Company Number: 123268

PATIENT
  Age: 43 Year
  Sex: Male

DRUGS (1)
  1. DAUNORUBICIN HCL [Suspect]
     Indication: ACUTE MYELOID LEUKAEMIA
     Dosage: 117MG
     Dates: start: 20110725

REACTIONS (10)
  - ANAESTHESIA [None]
  - CLOSTRIDIAL INFECTION [None]
  - LEUKOENCEPHALOPATHY [None]
  - PYREXIA [None]
  - HYPOAESTHESIA [None]
  - HALLUCINATION [None]
  - NEUTROPENIA [None]
  - INFARCTION [None]
  - FAECAL INCONTINENCE [None]
  - DELIRIUM [None]
